FAERS Safety Report 17710737 (Version 2)
Quarter: 2023Q1

REPORT INFORMATION
  Report Type: Spontaneous
  Country: US (occurrence: US)
  Receive Date: 20200427
  Receipt Date: 20230118
  Transmission Date: 20230418
  Serious: No
  Sender: FDA-Public Use
  Company Number: US-PFIZER INC-2020164090

PATIENT
  Age: 89 Year
  Sex: Female

DRUGS (1)
  1. QUINAPRIL [Suspect]
     Active Substance: QUINAPRIL
     Indication: Blood pressure abnormal
     Dosage: 5 MG, 2X/DAY (5MG IN MORNING AND 5MG IN EVENING)

REACTIONS (1)
  - Wrong technique in product usage process [Unknown]
